FAERS Safety Report 13562651 (Version 1)
Quarter: 2017Q2

REPORT INFORMATION
  Report Type: Spontaneous
  Country: US (occurrence: US)
  Receive Date: 20170518
  Receipt Date: 20170518
  Transmission Date: 20170830
  Serious: No
  Sender: FDA-Public Use
  Company Number: None

PATIENT
  Age: 27 Year
  Sex: Female

DRUGS (1)
  1. ORENCIA [Suspect]
     Active Substance: ABATACEPT

REACTIONS (5)
  - Decreased interest [None]
  - Arthropathy [None]
  - Feeling abnormal [None]
  - Depression [None]
  - Pain [None]

NARRATIVE: CASE EVENT DATE: 20170418
